FAERS Safety Report 11328757 (Version 1)
Quarter: 2015Q3

REPORT INFORMATION
  Report Type: Spontaneous
  Country: US (occurrence: US)
  Receive Date: 20150731
  Receipt Date: 20150731
  Transmission Date: 20151125
  Serious: Yes (Hospitalization)
  Sender: FDA-Public Use
  Company Number: US-ASTRAZENECA-2015SE72918

PATIENT
  Age: 59 Year
  Sex: Female
  Weight: 116.1 kg

DRUGS (18)
  1. TRAMADOL. [Concomitant]
     Active Substance: TRAMADOL
     Indication: SPINAL OSTEOARTHRITIS
     Route: 048
     Dates: start: 2007
  2. LIDODERM [Suspect]
     Active Substance: LIDOCAINE
     Indication: SPINAL OSTEOARTHRITIS
     Dosage: AS REQUIRED
     Route: 061
     Dates: start: 2012, end: 201503
  3. ASPIRIN. [Concomitant]
     Active Substance: ASPIRIN
     Indication: PROPHYLAXIS
     Route: 048
     Dates: start: 2011
  4. LANTUS SOLASTAR [Concomitant]
     Indication: DIABETES MELLITUS
     Dosage: 20 AT NIGHT
     Route: 058
     Dates: start: 2011
  5. LIDODERM [Suspect]
     Active Substance: LIDOCAINE
     Indication: SCIATICA
     Dosage: AS REQUIRED
     Route: 061
     Dates: start: 2012, end: 201503
  6. CALCITROL [Concomitant]
     Active Substance: CALCITRIOL
     Indication: CARDIAC DISORDER
     Route: 048
     Dates: start: 2011
  7. DILTIAZEM [Concomitant]
     Active Substance: DILTIAZEM
     Indication: CARDIAC DISORDER
     Route: 048
     Dates: start: 2011
  8. FERROUS SULFATE [Concomitant]
     Active Substance: FERROUS SULFATE\FERROUS SULFATE, DRIED
     Indication: CARDIAC DISORDER
     Route: 048
     Dates: start: 2011
  9. ULORIC [Concomitant]
     Active Substance: FEBUXOSTAT
     Indication: RENAL DISORDER
     Route: 048
     Dates: start: 2011
  10. CRESTOR [Suspect]
     Active Substance: ROSUVASTATIN CALCIUM
     Indication: BLOOD CHOLESTEROL INCREASED
     Route: 048
     Dates: start: 2012
  11. METOPROLOL ER [Suspect]
     Active Substance: METOPROLOL SUCCINATE
     Indication: HYPERTENSION
     Route: 048
     Dates: start: 2011
  12. ULORIC [Concomitant]
     Active Substance: FEBUXOSTAT
     Indication: GOUT
     Route: 048
     Dates: start: 2011
  13. CREAM THAT HAS TRAMADOL IN IT [Concomitant]
     Indication: PAIN
     Dosage: 3 TO 4 TIMES A DAY.
     Route: 061
     Dates: start: 201505
  14. FOLIC ACID. [Concomitant]
     Active Substance: FOLIC ACID
     Indication: CARDIAC DISORDER
     Route: 048
     Dates: start: 2011
  15. FUROSEMIDE. [Concomitant]
     Active Substance: FUROSEMIDE
     Indication: CARDIAC DISORDER
     Route: 048
     Dates: start: 2011
  16. VITAMIN D3 [Concomitant]
     Active Substance: CHOLECALCIFEROL
     Indication: CARDIAC DISORDER
     Dosage: 2000 DAILY
     Route: 048
     Dates: start: 2011
  17. CRESTOR [Suspect]
     Active Substance: ROSUVASTATIN CALCIUM
     Indication: BLOOD CHOLESTEROL INCREASED
     Dosage: DAILY
     Route: 048
  18. TRAMADOL. [Concomitant]
     Active Substance: TRAMADOL
     Indication: PAIN
     Route: 048
     Dates: start: 2007

REACTIONS (15)
  - Blood cholesterol increased [Unknown]
  - Drug dose omission [Recovered/Resolved]
  - Anxiety [Unknown]
  - Gout [Unknown]
  - Pain [Unknown]
  - Nausea [Unknown]
  - Cardiac failure congestive [Unknown]
  - Renal disorder [Unknown]
  - Diabetes mellitus [Unknown]
  - Spinal osteoarthritis [Unknown]
  - Feeling abnormal [Unknown]
  - Sciatica [Unknown]
  - Vomiting [Unknown]
  - Hypertension [Unknown]
  - Renal pain [Unknown]

NARRATIVE: CASE EVENT DATE: 2007
